FAERS Safety Report 18410609 (Version 1)
Quarter: 2020Q4

REPORT INFORMATION
  Report Type: Spontaneous
  Country: CA (occurrence: CA)
  Receive Date: 20201021
  Receipt Date: 20201021
  Transmission Date: 20210114
  Serious: Yes (Other)
  Sender: FDA-Public Use
  Company Number: CA-GLAXOSMITHKLINE-CA2020205026

PATIENT
  Sex: Female

DRUGS (1)
  1. LAMICTAL [Suspect]
     Active Substance: LAMOTRIGINE
     Indication: BIPOLAR DISORDER
     Dosage: UNK

REACTIONS (13)
  - Arthralgia [Not Recovered/Not Resolved]
  - Product prescribing issue [Unknown]
  - Mental impairment [Recovered/Resolved]
  - Drug withdrawal convulsions [Recovered/Resolved]
  - Disorientation [Recovered/Resolved]
  - Paraesthesia [Recovered/Resolved]
  - Product use in unapproved indication [Unknown]
  - Withdrawal syndrome [Recovered/Resolved]
  - Myalgia [Not Recovered/Not Resolved]
  - Therapy interrupted [Unknown]
  - Discomfort [Unknown]
  - Arthropathy [Not Recovered/Not Resolved]
  - Intentional product use issue [Unknown]
